FAERS Safety Report 14019773 (Version 3)
Quarter: 2017Q4

REPORT INFORMATION
  Report Type: Spontaneous
  Country: US (occurrence: US)
  Receive Date: 20170928
  Receipt Date: 20171106
  Transmission Date: 20180321
  Serious: Yes (Disabling)
  Sender: FDA-Public Use
  Company Number: US-BAYER-2017-172925

PATIENT

DRUGS (1)
  1. CIPRO [Suspect]
     Active Substance: CIPROFLOXACIN HYDROCHLORIDE
     Indication: BLADDER OPERATION
     Dosage: UNK
     Dates: start: 20150213

REACTIONS (4)
  - Off label use [None]
  - Gait disturbance [None]
  - Impaired quality of life [None]
  - Product use in unapproved indication [None]
